FAERS Safety Report 24402991 (Version 4)
Quarter: 2025Q1

REPORT INFORMATION
  Report Type: Spontaneous
  Country: SK (occurrence: SK)
  Receive Date: 20241007
  Receipt Date: 20250121
  Transmission Date: 20250409
  Serious: Yes (Death)
  Sender: JOHNSON AND JOHNSON
  Company Number: SK-JNJFOC-20241013664

PATIENT
  Age: 6 Decade
  Sex: Male

DRUGS (14)
  1. TREMFYA [Suspect]
     Active Substance: GUSELKUMAB
     Indication: Psoriasis
     Route: 065
     Dates: start: 202312
  2. TREMFYA [Suspect]
     Active Substance: GUSELKUMAB
  3. TREMFYA [Suspect]
     Active Substance: GUSELKUMAB
  4. TELDIPIN [Concomitant]
  5. AMLODIPINE BESYLATE [Concomitant]
     Active Substance: AMLODIPINE BESYLATE
  6. DIOSMIN\HESPERIDIN [Concomitant]
     Active Substance: DIOSMIN\HESPERIDIN
  7. LEVOCETIRIZINE [Concomitant]
     Active Substance: LEVOCETIRIZINE
  8. ALLOPURINOL [Concomitant]
     Active Substance: ALLOPURINOL
  9. MELOXICAM [Concomitant]
     Active Substance: MELOXICAM
  10. FUROSEMIDE [Concomitant]
     Active Substance: FUROSEMIDE
  11. DIETARY SUPPLEMENT\HERBALS\MILK THISTLE [Concomitant]
     Active Substance: MILK THISTLE
  12. ZOLPIDEM TARTRATE [Concomitant]
     Active Substance: ZOLPIDEM TARTRATE
  13. TRAMADOL [Concomitant]
     Active Substance: TRAMADOL
  14. NALGESIN [NAPROXEN] [Concomitant]

REACTIONS (1)
  - Myocardial infarction [Fatal]
